FAERS Safety Report 23263812 (Version 2)
Quarter: 2023Q4

REPORT INFORMATION
  Report Type: Spontaneous
  Country: US (occurrence: US)
  Receive Date: 20231205
  Receipt Date: 20231212
  Transmission Date: 20240110
  Serious: Yes (Other)
  Sender: FDA-Public Use
  Company Number: US-002147023-NVSC2023US254788

PATIENT
  Age: 67 Year
  Sex: Female
  Weight: 56 kg

DRUGS (4)
  1. CLOFAZIMINE [Suspect]
     Active Substance: CLOFAZIMINE
     Indication: Bronchiectasis
     Dosage: 100 MG, QD
     Route: 048
     Dates: start: 20220914, end: 20231001
  2. CLOFAZIMINE [Suspect]
     Active Substance: CLOFAZIMINE
     Indication: Mycobacterium avium complex infection
  3. AMIKACIN [Suspect]
     Active Substance: AMIKACIN
     Indication: Bronchiectasis
     Dosage: UNK
     Route: 065
     Dates: start: 202201
  4. AMIKACIN [Suspect]
     Active Substance: AMIKACIN
     Indication: Mycobacterium avium complex infection
     Dosage: UNK UNK, QD (LIPOSOMAL)
     Dates: start: 202203

REACTIONS (1)
  - Neuropathy peripheral [Recovering/Resolving]

NARRATIVE: CASE EVENT DATE: 20231001
